FAERS Safety Report 25891512 (Version 2)
Quarter: 2025Q4

REPORT INFORMATION
  Report Type: Spontaneous
  Country: EU (occurrence: EU)
  Receive Date: 20251007
  Receipt Date: 20251105
  Transmission Date: 20260117
  Serious: Yes (Hospitalization, Other)
  Sender: MYLAN
  Company Number: None

PATIENT
  Age: 29 Year
  Sex: Female

DRUGS (8)
  1. TRAMADOL [Suspect]
     Active Substance: TRAMADOL
     Indication: Neuralgia
     Dosage: 1200 MILLIGRAM, TOTAL
     Dates: start: 20240629
  2. TRAMADOL [Suspect]
     Active Substance: TRAMADOL
     Indication: Spinal fracture
     Dosage: 1200 MILLIGRAM, TOTAL
     Route: 048
     Dates: start: 20240629
  3. TRAMADOL [Suspect]
     Active Substance: TRAMADOL
     Dosage: 1200 MILLIGRAM, TOTAL
     Route: 048
     Dates: start: 20240629
  4. TRAMADOL [Suspect]
     Active Substance: TRAMADOL
     Dosage: 1200 MILLIGRAM, TOTAL
     Dates: start: 20240629
  5. TRAMADOL [Suspect]
     Active Substance: TRAMADOL
     Indication: Spinal fracture
     Dosage: 200 MILLIGRAM, QD, 200 MILLIGRAM, 1/DAY
     Dates: start: 202503
  6. TRAMADOL [Suspect]
     Active Substance: TRAMADOL
     Indication: Neuralgia
     Dosage: 200 MILLIGRAM, QD, 200 MILLIGRAM, 1/DAY
     Route: 065
     Dates: start: 202503
  7. TRAMADOL [Suspect]
     Active Substance: TRAMADOL
     Dosage: 200 MILLIGRAM, QD, 200 MILLIGRAM, 1/DAY
     Route: 065
     Dates: start: 202503
  8. TRAMADOL [Suspect]
     Active Substance: TRAMADOL
     Dosage: 200 MILLIGRAM, QD, 200 MILLIGRAM, 1/DAY
     Dates: start: 202503

REACTIONS (7)
  - Dizziness [Recovered/Resolved]
  - Somnolence [Recovered/Resolved]
  - Hallucination [Unknown]
  - Maternal exposure during pregnancy [Recovered/Resolved]
  - Vaginal haemorrhage [Unknown]
  - Tachycardia [Unknown]
  - Overdose [Recovered/Resolved]

NARRATIVE: CASE EVENT DATE: 20240629
